FAERS Safety Report 12305553 (Version 1)
Quarter: 2016Q2

REPORT INFORMATION
  Report Type: Spontaneous
  Country: JP (occurrence: JP)
  Receive Date: 20160426
  Receipt Date: 20160426
  Transmission Date: 20160815
  Serious: Yes (Other)
  Sender: FDA-Public Use
  Company Number: JP-CONCORDIA PHARMACEUTICALS INC.-CO-PL-JP-2016-201

PATIENT
  Age: 77 Year
  Sex: Female

DRUGS (2)
  1. HYDROXYCHLOROQUINE SULFATE. [Suspect]
     Active Substance: HYDROXYCHLOROQUINE SULFATE
     Indication: SYSTEMIC LUPUS ERYTHEMATOSUS
  2. PREDNISOLONE. [Concomitant]
     Active Substance: PREDNISOLONE
     Indication: ORGANISING PNEUMONIA

REACTIONS (5)
  - Blood immunoglobulin G increased [Recovering/Resolving]
  - Hypocomplementaemia [Recovering/Resolving]
  - Renal impairment [Recovering/Resolving]
  - Protein urine present [Recovering/Resolving]
  - Nephropathy [Recovering/Resolving]
